FAERS Safety Report 6732816-0 (Version None)
Quarter: 2010Q2

REPORT INFORMATION
  Report Type: 
  Country: None (occurrence: None)
  Receive Date: 20100517
  Receipt Date: 20100506
  Transmission Date: 20101027
  Serious: Yes (Death, Hospitalization)
  Sender: FDA-Public Use
  Company Number: 99608

PATIENT
  Age: 48 Year
  Sex: Female

DRUGS (2)
  1. LEUCOVORIN CALCIUM [Suspect]
     Indication: CHEMOTHERAPY
     Dosage: 200MG.M2
  2. CETUXIMAB [Concomitant]

REACTIONS (11)
  - BLOOD LACTATE DEHYDROGENASE INCREASED [None]
  - BLOOD PRESSURE DECREASED [None]
  - HEART RATE DECREASED [None]
  - HYPOXIA [None]
  - MASS [None]
  - METABOLIC ACIDOSIS [None]
  - PELVIC MASS [None]
  - PNEUMONITIS [None]
  - PULMONARY EMBOLISM [None]
  - THROMBOSIS [None]
  - VENTRICULAR ARRHYTHMIA [None]
